FAERS Safety Report 6473991-5 (Version None)
Quarter: 2009Q4

REPORT INFORMATION
  Report Type: 
  Country: None (occurrence: None)
  Receive Date: 20091204
  Receipt Date: 20091201
  Transmission Date: 20100525
  Serious: Yes (Hospitalization)
  Sender: FDA-Public Use
  Company Number: FR-WYE-G05029009

PATIENT
  Age: 7 Year
  Sex: Female

DRUGS (6)
  1. ADVIL LIQUI-GELS [Suspect]
     Indication: PYREXIA
     Dosage: ONE ALTERNATING DOSE-FORM EVERY 3 HOURS
     Route: 048
     Dates: start: 20091128, end: 20091129
  2. ADVIL LIQUI-GELS [Suspect]
     Indication: PAIN
  3. DOLIPRANE [Suspect]
     Indication: PYREXIA
     Dosage: UNKNOWN
     Route: 048
     Dates: start: 20091128, end: 20091129
  4. DOLIPRANE [Suspect]
     Indication: PAIN
  5. NUREFLEX [Suspect]
     Indication: PYREXIA
     Dosage: ONE ALTERNATING DOSE-FORM EVERY 3 HOURS
     Route: 048
     Dates: start: 20091128, end: 20091129
  6. NUREFLEX [Suspect]
     Indication: PAIN

REACTIONS (6)
  - CHEILITIS [None]
  - CYTOLYTIC HEPATITIS [None]
  - HEPATITIS [None]
  - INCORRECT DOSE ADMINISTERED [None]
  - PRURITUS [None]
  - RASH ERYTHEMATOUS [None]
